FAERS Safety Report 10467695 (Version 1)
Quarter: 2014Q3

REPORT INFORMATION
  Report Type: Spontaneous
  Country: FR (occurrence: FR)
  Receive Date: 20140922
  Receipt Date: 20140922
  Transmission Date: 20150326
  Serious: Yes (Other)
  Sender: FDA-Public Use
  Company Number: FR-GLAXOSMITHKLINE-B1035522A

PATIENT
  Age: 33 Year
  Sex: Male

DRUGS (4)
  1. CALCIUM [Suspect]
     Active Substance: CALCIUM
     Indication: HYPOCALCAEMIA
     Dosage: 3 G, QD
     Dates: start: 20140807
  2. LUGOL [Concomitant]
     Active Substance: IODINE\POTASSIUM IODIDE
     Dosage: UNK
     Route: 048
     Dates: end: 20140807
  3. LEVOTHYROX [Suspect]
     Active Substance: LEVOTHYROXINE
     Indication: GOITRE
     Dosage: UNK
     Route: 065
  4. SORIATANE [Suspect]
     Active Substance: ACITRETIN
     Indication: PSORIASIS
     Dosage: UNK
     Route: 048
     Dates: start: 201403

REACTIONS (1)
  - Transient ischaemic attack [Recovered/Resolved]

NARRATIVE: CASE EVENT DATE: 20140810
